FAERS Safety Report 4995380-2 (Version None)
Quarter: 2006Q2

REPORT INFORMATION
  Report Type: 
  Country: None (occurrence: None)
  Receive Date: 20060503
  Receipt Date: 20060418
  Transmission Date: 20061013
  Serious: Yes (Death)
  Sender: FDA-Public Use
  Company Number: US200604003210

PATIENT
  Sex: 0

DRUGS (1)
  1. XIGRIS [Suspect]
     Indication: SEPSIS
     Dosage: NTRAVENOUS
     Route: 042

REACTIONS (1)
  - HAEMORRHAGE [None]
